FAERS Safety Report 5068947-3 (Version None)
Quarter: 2006Q3

REPORT INFORMATION
  Report Type: 
  Country: None (occurrence: None)
  Receive Date: 20060802
  Receipt Date: 20060731
  Transmission Date: 20061208
  Serious: Yes (Other)
  Sender: FDA-Public Use
  Company Number: US-BRISTOL-MYERS SQUIBB COMPANY-13461041

PATIENT

DRUGS (1)
  1. DEFINITY [Suspect]
     Indication: ECHOCARDIOGRAM
     Route: 040

REACTIONS (4)
  - CONVULSION [None]
  - DIZZINESS [None]
  - INFUSION RELATED REACTION [None]
  - VOMITING [None]
